FAERS Safety Report 6276883-X (Version None)
Quarter: 2009Q3

REPORT INFORMATION
  Report Type: 
  Country: None (occurrence: None)
  Receive Date: 20090722
  Receipt Date: 20081002
  Transmission Date: 20100115
  Serious: No
  Sender: FDA-Public Use
  Company Number: US-BRISTOL-MYERS SQUIBB COMPANY-14357172

PATIENT
  Age: 82 Year
  Sex: Male

DRUGS (5)
  1. COUMADIN [Suspect]
     Dosage: 1 DOSEAGEFORM = 6 MG ON MON/FRI, 6.5 MG ON TUE, WED, THU, SAT AND SUN
     Dates: start: 19920101
  2. LISINOPRIL [Concomitant]
  3. AVODART [Concomitant]
  4. TRUSOPT [Concomitant]
  5. SODOL [Concomitant]

REACTIONS (2)
  - PRURITUS [None]
  - RASH MACULAR [None]
